FAERS Safety Report 6713721-2 (Version None)
Quarter: 2010Q2

REPORT INFORMATION
  Report Type: 
  Country: None (occurrence: None)
  Receive Date: 20100506
  Receipt Date: 20100502
  Transmission Date: 20101027
  Serious: Yes (Hospitalization)
  Sender: FDA-Public Use
  Company Number: US-JNJCH-2010010649

PATIENT
  Age: 20 Month
  Sex: Male
  Weight: 10.9 kg

DRUGS (2)
  1. ZYRTEC [Suspect]
     Indication: SEASONAL ALLERGY
     Dosage: TEXT:2.5 ML AS DIRECTED USUALLY DAILY
     Route: 048
  2. ACETYLSALICYLIC ACID [Concomitant]
     Indication: CARDIAC DISORDER
     Dosage: TEXT:81MG 1 DAILY
     Route: 048

REACTIONS (4)
  - CARDIAC FAILURE [None]
  - MALAISE [None]
  - NASOPHARYNGITIS [None]
  - PRODUCT QUALITY ISSUE [None]
